FAERS Safety Report 15707002 (Version 1)
Quarter: 2018Q4

REPORT INFORMATION
  Report Type: Spontaneous
  Country: US (occurrence: US)
  Receive Date: 20181210
  Receipt Date: 20181210
  Transmission Date: 20190205
  Serious: No
  Sender: FDA-Public Use
  Company Number: US-ASTRAZENECA-2018SF58604

PATIENT
  Age: 23327 Day
  Sex: Female
  Weight: 73.9 kg

DRUGS (4)
  1. BYETTA [Suspect]
     Active Substance: EXENATIDE
     Indication: BLOOD GLUCOSE INCREASED
     Route: 058
     Dates: start: 20181127
  2. LISINOPRIL. [Suspect]
     Active Substance: LISINOPRIL
     Dosage: 2.5MG UNKNOWN
     Route: 048
  3. LEVEMIR [Concomitant]
     Active Substance: INSULIN DETEMIR
     Indication: BLOOD GLUCOSE INCREASED
     Dosage: 72 UNITS TWO TIMES A DAY. PATIENT STATED THAT SHE DIVIDES THE DOSE INTO 36 UNITS IN THE MORNING A...
     Route: 058
     Dates: start: 2013
  4. SYNTHROID [Concomitant]
     Active Substance: LEVOTHYROXINE SODIUM
     Indication: THYROID DISORDER
     Dosage: 75.0UG UNKNOWN
     Route: 065

REACTIONS (3)
  - Coeliac disease [Unknown]
  - Nausea [Not Recovered/Not Resolved]
  - Malaise [Unknown]

NARRATIVE: CASE EVENT DATE: 20181127
